FAERS Safety Report 14837842 (Version 2)
Quarter: 2018Q2

REPORT INFORMATION
  Report Type: Spontaneous
  Country: US (occurrence: US)
  Receive Date: 20180502
  Receipt Date: 20180620
  Transmission Date: 20180711
  Serious: No
  Sender: FDA-Public Use
  Company Number: PHEH2018US016149

PATIENT
  Sex: Male

DRUGS (1)
  1. NEOMYCIN AND POLYMYXIN B SULFATES AND DEXAMETHASONE [Suspect]
     Active Substance: DEXAMETHASONE\NEOMYCIN SULFATE\POLYMYXIN B SULFATE
     Indication: PRODUCT USED FOR UNKNOWN INDICATION
     Dosage: 4 DF, QD
     Route: 047

REACTIONS (2)
  - Eye irritation [Unknown]
  - Product container issue [Unknown]
